FAERS Safety Report 16463437 (Version 1)
Quarter: 2019Q2

REPORT INFORMATION
  Report Type: Spontaneous
  Country: JP (occurrence: JP)
  Receive Date: 20190621
  Receipt Date: 20190621
  Transmission Date: 20190711
  Serious: Yes (Hospitalization, Other)
  Sender: FDA-Public Use
  Company Number: JP-ELI_LILLY_AND_COMPANY-JP201905011540

PATIENT
  Age: 82 Year
  Sex: Male
  Weight: 53 kg

DRUGS (2)
  1. URIEF [Concomitant]
     Active Substance: SILODOSIN
     Dosage: 4 MG, BID
     Route: 048
     Dates: start: 2014
  2. DULOXETINE HYDROCHLORIDE. [Suspect]
     Active Substance: DULOXETINE HYDROCHLORIDE
     Indication: POST HERPETIC NEURALGIA
     Dosage: 20 MG, DAILY
     Route: 048
     Dates: start: 20190509, end: 20190511

REACTIONS (5)
  - Toxic encephalopathy [Unknown]
  - Hyponatraemia [Recovering/Resolving]
  - Off label use [Recovered/Resolved]
  - Cerebral infarction [Unknown]
  - Somnolence [Not Recovered/Not Resolved]

NARRATIVE: CASE EVENT DATE: 20190509
